FAERS Safety Report 21479972 (Version 1)
Quarter: 2022Q4

REPORT INFORMATION
  Report Type: Spontaneous
  Country: CO (occurrence: CO)
  Receive Date: 20221019
  Receipt Date: 20221019
  Transmission Date: 20230113
  Serious: Yes (Other)
  Sender: FDA-Public Use
  Company Number: CO-AMGEN-COLSP2022091690

PATIENT
  Age: 69 Year
  Sex: Male
  Weight: 63 kg

DRUGS (10)
  1. MVASI [Suspect]
     Active Substance: BEVACIZUMAB-AWWB
     Indication: Colon cancer
     Dosage: 120 MILLIGRAM, (DAY 1 AND DAY 15)
     Route: 065
     Dates: start: 20211201
  2. MVASI [Suspect]
     Active Substance: BEVACIZUMAB-AWWB
     Dosage: 320 MILLIGRAM (DAY L AND DAY 15)
     Route: 065
     Dates: end: 20220913
  3. LEUCOVORIN CALCIUM [Concomitant]
     Active Substance: LEUCOVORIN CALCIUM
     Indication: Colon cancer
     Dosage: 676 MILLIGRAM, (DAY 1 AND DAY 15)
     Dates: start: 20211201
  4. LEUCOVORIN CALCIUM [Concomitant]
     Active Substance: LEUCOVORIN CALCIUM
     Dosage: 500 MILLIGRAM (DAY 1 AND DAY 15)
     Dates: end: 20220913
  5. FLUOROURACIL [Concomitant]
     Active Substance: FLUOROURACIL
     Indication: Colon cancer
     Dosage: 676 MILLIGRAM, (DAY 1 AND DAY 15)
     Dates: start: 20211201
  6. FLUOROURACIL [Concomitant]
     Active Substance: FLUOROURACIL
     Dosage: 4056 MILLIGRAM, (DAY 1 AND DAY 15)
     Dates: start: 20211201
  7. FLUOROURACIL [Concomitant]
     Active Substance: FLUOROURACIL
     Dosage: 500 MILLIGRAM (DAY 1 AND DAY 15)
     Dates: end: 20220913
  8. FLUOROURACIL [Concomitant]
     Active Substance: FLUOROURACIL
     Dosage: 300 MILLIGRAM  (DAY 1 AND DAY 15)
     Dates: end: 20220913
  9. IRINOTECAN [Concomitant]
     Active Substance: IRINOTECAN
     Indication: Colon cancer
     Dosage: 300 MILLIGRAM, (DAY 1 AND DAY 15)
     Dates: start: 20210503
  10. IRINOTECAN [Concomitant]
     Active Substance: IRINOTECAN
     Dosage: 225 MILLIGRAM, (DAY 1 AND DAY 15)
     Dates: start: 20210503

REACTIONS (2)
  - Adenocarcinoma of colon [Unknown]
  - Diarrhoea [Recovering/Resolving]

NARRATIVE: CASE EVENT DATE: 20220517
